FAERS Safety Report 5173242-8 (Version None)
Quarter: 2006Q4

REPORT INFORMATION
  Report Type: 
  Country: None (occurrence: None)
  Receive Date: 20061206
  Receipt Date: 20061120
  Transmission Date: 20070319
  Serious: Yes (Hospitalization)
  Sender: FDA-Public Use
  Company Number: 2006002057

PATIENT
  Age: 76 Year
  Sex: Male

DRUGS (8)
  1. TARCEVA [Suspect]
     Indication: NON-SMALL CELL LUNG CANCER
     Dosage: 100 MG (QD), ORAL
     Route: 048
     Dates: end: 20061016
  2. TARCEVA [Suspect]
     Indication: NON-SMALL CELL LUNG CANCER
     Dosage: 100 MG (QD), ORAL
     Route: 048
     Dates: start: 20061114
  3. BEVACIZUMAB [Suspect]
     Indication: NON-SMALL CELL LUNG CANCER
     Dosage: 15 MG/KG (1320 MG) (Q 3 WK), INTRAVENOUS
     Route: 042
     Dates: end: 20061010
  4. IMODIUM [Concomitant]
  5. ZOFRAN [Concomitant]
  6. REGLAN [Concomitant]
  7. CLARITIN [Concomitant]
  8. NEXIUM [Concomitant]

REACTIONS (3)
  - DIVERTICULITIS [None]
  - DIVERTICULUM INTESTINAL [None]
  - RASH [None]
